FAERS Safety Report 23127882 (Version 2)
Quarter: 2023Q4

REPORT INFORMATION
  Report Type: Report from Study
  Country: US (occurrence: US)
  Receive Date: 20231031
  Receipt Date: 20231120
  Transmission Date: 20240110
  Serious: Yes (Hospitalization)
  Sender: FDA-Public Use
  Company Number: US-REATA PHARMACEUTICALS INC.-2023USRTAOMA000483

PATIENT

DRUGS (1)
  1. SKYCLARYS [Suspect]
     Active Substance: OMAVELOXOLONE
     Indication: Friedreich^s ataxia
     Dosage: 150 MILLIGRAM, BY MOUTH ONCE DAILY
     Route: 048
     Dates: start: 20230930, end: 20231008

REACTIONS (8)
  - Atrial fibrillation [Unknown]
  - Thrombosis [Unknown]
  - Pericardial effusion [Unknown]
  - Pleural effusion [Unknown]
  - Chest pain [Unknown]
  - Heart rate increased [Unknown]
  - Rhinovirus infection [Unknown]
  - Hepatic enzyme increased [Unknown]

NARRATIVE: CASE EVENT DATE: 20231001
